FAERS Safety Report 8330564-7 (Version None)
Quarter: 2012Q2

REPORT INFORMATION
  Report Type: 
  Country: None (occurrence: None)
  Receive Date: 20120502
  Receipt Date: 20120404
  Transmission Date: 20120825
  Serious: No
  Sender: FDA-Public Use
  Company Number: US-AMGEN-USASP2012021530

PATIENT
  Age: 37 Year
  Sex: Male

DRUGS (2)
  1. ENBREL [Suspect]
     Indication: PSORIATIC ARTHROPATHY
     Dosage: 50 MG, QWK
     Dates: start: 20120106
  2. ENBREL [Suspect]
     Indication: PSORIASIS

REACTIONS (2)
  - PSORIASIS [None]
  - DRUG INEFFECTIVE [None]
